FAERS Safety Report 21915635 (Version 1)
Quarter: 2023Q1

REPORT INFORMATION
  Report Type: Spontaneous
  Country: US (occurrence: None)
  Receive Date: 20230125
  Receipt Date: 20230125
  Transmission Date: 20230418
  Serious: Yes (Hospitalization)
  Sender: FDA-Public Use
  Company Number: None

PATIENT
  Age: 49 Year
  Sex: Female
  Weight: 70.29 kg

DRUGS (2)
  1. YESCARTA [Suspect]
     Active Substance: AXICABTAGENE CILOLEUCEL
     Indication: Diffuse large B-cell lymphoma
     Dates: start: 20221123
  2. YESCARTA [Concomitant]
     Active Substance: AXICABTAGENE CILOLEUCEL
     Dates: start: 20221123

REACTIONS (2)
  - Pyrexia [None]
  - Cytokine release syndrome [None]

NARRATIVE: CASE EVENT DATE: 20221130
